FAERS Safety Report 5473043-7 (Version None)
Quarter: 2007Q3

REPORT INFORMATION
  Report Type: 
  Country: None (occurrence: None)
  Receive Date: 20070927
  Receipt Date: 20070914
  Transmission Date: 20080115
  Serious: Yes (Other)
  Sender: FDA-Public Use
  Company Number: 2007JP004370

PATIENT
  Age: 90 Year
  Sex: Female
  Weight: 50 kg

DRUGS (8)
  1. VESICARE [Suspect]
     Indication: HYPERTONIC BLADDER
     Dosage: 5 MG, UID/QD, ORAL
     Route: 048
     Dates: start: 20070620, end: 20070703
  2. VESICARE [Suspect]
     Indication: HYPERTONIC BLADDER
     Dosage: 5 MG, UID/QD, ORAL
     Route: 048
     Dates: start: 20070704, end: 20070721
  3. ARICEPT [Suspect]
     Indication: DEMENTIA
     Dosage: 5 MG, /D, ORAL
     Route: 048
     Dates: start: 20040709, end: 20070721
  4. ARICEPT [Suspect]
     Indication: DEMENTIA
     Dosage: 5 MG, /D, ORAL
     Route: 048
     Dates: start: 20070808
  5. PAXIL [Suspect]
     Indication: DEPRESSION
     Dosage: 20 MG, BID, ORAL
     Route: 048
     Dates: start: 20050907, end: 20070721
  6. CALBLOCK (AZELNIDIPINE) [Concomitant]
  7. TENORMIN [Concomitant]
  8. CANDESARTAN CILEXETIL [Concomitant]

REACTIONS (8)
  - ABNORMAL BEHAVIOUR [None]
  - COMMUNICATION DISORDER [None]
  - DEMENTIA [None]
  - IMPAIRED SELF-CARE [None]
  - PARKINSONISM [None]
  - POSTURE ABNORMAL [None]
  - SPEECH DISORDER [None]
  - TREMOR [None]
